FAERS Safety Report 4268184-6 (Version None)
Quarter: 2004Q1

REPORT INFORMATION
  Report Type: 
  Country: None (occurrence: None)
  Receive Date: 20040109
  Receipt Date: 20031022
  Transmission Date: 20041129
  Serious: Yes (Death, Life-Threatening)
  Sender: FDA-Public Use
  Company Number: WAES 0310USA02519

PATIENT
  Age: 16 Year
  Sex: Male

DRUGS (3)
  1. DIACETYLMORPHINE [Suspect]
  2. ADVAIR DISKUS 250/50 [Concomitant]
  3. SINGULAIR [Suspect]
     Route: 048

REACTIONS (2)
  - ALCOHOLISM [None]
  - MULTIPLE DRUG OVERDOSE [None]
